FAERS Safety Report 7461075-9 (Version None)
Quarter: 2011Q2

REPORT INFORMATION
  Report Type: 
  Country: None (occurrence: None)
  Receive Date: 20110505
  Receipt Date: 20110428
  Transmission Date: 20111010
  Serious: Yes (Life-Threatening, Hospitalization, Other)
  Sender: FDA-Public Use
  Company Number: TR-ABBOTT-11R-161-0722482-00

PATIENT
  Weight: 3.8 kg

DRUGS (1)
  1. SURVANTA [Suspect]
     Indication: NEONATAL RESPIRATORY DISTRESS SYNDROME
     Dosage: INTRATRACHEAL ROUTE
     Route: 050

REACTIONS (3)
  - GENE MUTATION [None]
  - ACUTE RESPIRATORY DISTRESS SYNDROME [None]
  - OXYGEN SATURATION DECREASED [None]
